FAERS Safety Report 6681408-0 (Version None)
Quarter: 2010Q2

REPORT INFORMATION
  Report Type: 
  Country: None (occurrence: None)
  Receive Date: 20100414
  Receipt Date: 20100408
  Transmission Date: 20101027
  Serious: Yes (Hospitalization)
  Sender: FDA-Public Use
  Company Number: B0647152A

PATIENT
  Sex: Female

DRUGS (14)
  1. ALKERAN [Suspect]
     Indication: NON-HODGKIN'S LYMPHOMA
     Dosage: 150MG PER DAY
     Route: 042
     Dates: start: 20091118, end: 20091118
  2. CARMUSTINE [Suspect]
     Indication: NON-HODGKIN'S LYMPHOMA
     Dosage: 300MG PER DAY
     Route: 042
     Dates: start: 20091113, end: 20091113
  3. ARACYTIN [Suspect]
     Indication: NON-HODGKIN'S LYMPHOMA
     Dosage: 430MG PER DAY
     Route: 042
     Dates: start: 20091114, end: 20091117
  4. VEPESID [Suspect]
     Indication: NON-HODGKIN'S LYMPHOMA
     Dosage: 210MG PER DAY
     Route: 042
     Dates: start: 20091114, end: 20091117
  5. DECADRON [Concomitant]
     Indication: DRUG USE FOR UNKNOWN INDICATION
     Dosage: 4MGML PER DAY
     Route: 042
  6. LEVOXACIN [Concomitant]
     Indication: DRUG USE FOR UNKNOWN INDICATION
     Route: 048
  7. MEPRAL [Concomitant]
     Indication: DRUG USE FOR UNKNOWN INDICATION
     Dosage: 20MG PER DAY
     Route: 048
  8. SPORANOX [Concomitant]
     Indication: DRUG USE FOR UNKNOWN INDICATION
     Dosage: 400MG PER DAY
     Route: 048
  9. ZOVIRAX [Concomitant]
     Indication: DRUG USE FOR UNKNOWN INDICATION
     Dosage: 1200MG PER DAY
     Route: 048
  10. ALLOPURINOL [Concomitant]
     Indication: DRUG USE FOR UNKNOWN INDICATION
     Dosage: 300MG PER DAY
     Route: 048
  11. LYRICA [Concomitant]
     Indication: DRUG USE FOR UNKNOWN INDICATION
     Dosage: 300MG PER DAY
     Route: 048
  12. FUNGIZONE [Concomitant]
     Indication: DRUG USE FOR UNKNOWN INDICATION
     Route: 065
  13. BREVA [Concomitant]
     Indication: DRUG USE FOR UNKNOWN INDICATION
     Dosage: 15ML PER DAY
     Route: 065
  14. DURAGESIC-100 [Concomitant]
     Indication: DRUG USE FOR UNKNOWN INDICATION
     Route: 065

REACTIONS (4)
  - PNEUMONIA [None]
  - PSEUDOMONAS INFECTION [None]
  - PYREXIA [None]
  - SEPSIS [None]
